FAERS Safety Report 7679209 (Version 6)
Quarter: 2017Q1

REPORT INFORMATION
  Report Type: Report from Study
  Country: GB (occurrence: GB)
  Receive Date: 20101122
  Receipt Date: 20170113
  Transmission Date: 20170429
  Serious: Yes (Other)
  Sender: FDA-Public Use
  Company Number: GB-ROCHE-741775

PATIENT

DRUGS (4)
  1. OXALIPLATIN. [Suspect]
     Active Substance: OXALIPLATIN
     Indication: GASTROOESOPHAGEAL CANCER
     Route: 065
  2. CAPECITABINE. [Suspect]
     Active Substance: CAPECITABINE
     Indication: GASTROOESOPHAGEAL CANCER
     Route: 048
  3. PANITUMUMAB [Suspect]
     Active Substance: PANITUMUMAB
     Indication: GASTROOESOPHAGEAL CANCER
     Route: 065
  4. EPIRUBICIN HYDROCHLORIDE. [Suspect]
     Active Substance: EPIRUBICIN HYDROCHLORIDE
     Indication: GASTROOESOPHAGEAL CANCER
     Route: 042

REACTIONS (20)
  - Anaemia [Unknown]
  - Vomiting [Unknown]
  - Fatigue [Unknown]
  - Neuropathy peripheral [Unknown]
  - Mucosal inflammation [Unknown]
  - Thrombocytopenia [Unknown]
  - Hypokalaemia [Unknown]
  - Infection [Unknown]
  - Pulmonary embolism [Unknown]
  - Febrile neutropenia [Unknown]
  - Neutropenia [Unknown]
  - Embolism [Unknown]
  - Diarrhoea [Unknown]
  - Lethargy [Unknown]
  - Palmar-plantar erythrodysaesthesia syndrome [Unknown]
  - Rash [Unknown]
  - Dehydration [Unknown]
  - Nausea [Unknown]
  - Deep vein thrombosis [Unknown]
  - Hypomagnesaemia [Unknown]
